FAERS Safety Report 5019234-0 (Version None)
Quarter: 2006Q2

REPORT INFORMATION
  Report Type: 
  Country: None (occurrence: None)
  Receive Date: 20060606
  Receipt Date: 20060601
  Transmission Date: 20061013
  Serious: Yes (Death, Other)
  Sender: FDA-Public Use
  Company Number: US-SANOFI-SYNTHELABO-F01200601337

PATIENT
  Sex: Male

DRUGS (4)
  1. LEUCOVORIN CALCIUM [Suspect]
     Dosage: UNK
     Route: 065
  2. FLUOROURACIL [Suspect]
     Dosage: UNK
     Route: 065
  3. AVASTIN [Suspect]
     Route: 042
     Dates: start: 20051018, end: 20051018
  4. OXALIPLATIN [Suspect]
     Indication: COLORECTAL CANCER METASTATIC
     Dosage: UNK
     Route: 065

REACTIONS (2)
  - DEATH [None]
  - SEPTIC SHOCK [None]
